FAERS Safety Report 9370706 (Version 1)
Quarter: 2013Q2

REPORT INFORMATION
  Report Type: Spontaneous
  Country: FR (occurrence: FR)
  Receive Date: 20130626
  Receipt Date: 20130626
  Transmission Date: 20140414
  Serious: Yes (Life-Threatening, Other)
  Sender: FDA-Public Use
  Company Number: FR-TEVA-413977ISR

PATIENT
  Age: 78 Year
  Sex: Female

DRUGS (1)
  1. FUROSEMIDE TEVA 40 MG [Suspect]
     Dosage: 40 MILLIGRAM DAILY; DIVISIBLE TABLET
     Route: 048
     Dates: start: 2009

REACTIONS (7)
  - Malaise [Unknown]
  - Fall [Unknown]
  - Urinary tract infection [Unknown]
  - Haematoma [Unknown]
  - Pallor [Unknown]
  - Dizziness [Unknown]
  - Amnesia [Unknown]
